FAERS Safety Report 11172035 (Version 9)
Quarter: 2015Q3

REPORT INFORMATION
  Report Type: Spontaneous
  Country: US (occurrence: US)
  Receive Date: 20150608
  Receipt Date: 20150811
  Transmission Date: 20151125
  Serious: Yes (Hospitalization, Other)
  Sender: FDA-Public Use
  Company Number: US-PFIZER INC-2015191064

PATIENT
  Age: 58 Year
  Sex: Male

DRUGS (11)
  1. RANITIDINE [Concomitant]
     Active Substance: RANITIDINE\RANITIDINE HYDROCHLORIDE
     Dosage: 150 MG, AT BEDTIME
     Route: 048
  2. MOTRIN [Concomitant]
     Active Substance: IBUPROFEN
     Dosage: 200 MG, 1X/DAY
     Route: 048
  3. HYDROMORPHONE HCL [Concomitant]
     Active Substance: HYDROMORPHONE HYDROCHLORIDE
     Dosage: 1 MG, UNK
     Route: 040
  4. SODIUM CHLORIDE. [Concomitant]
     Active Substance: SODIUM CHLORIDE
     Dosage: 1000 (ML/HR)
  5. MARCAINE [Suspect]
     Active Substance: BUPIVACAINE HYDROCHLORIDE
     Indication: ARTHRITIS
     Dosage: 2 ML (0.25% 1 X 50ML), UNK
     Dates: start: 20150528
  6. LANSOPRAZOLE. [Concomitant]
     Active Substance: LANSOPRAZOLE
     Dosage: 30 MG, 1X/DAY
     Route: 048
  7. BUPIVACAINE [Suspect]
     Active Substance: BUPIVACAINE
     Dosage: UNK
  8. DEPO-MEDROL [Suspect]
     Active Substance: METHYLPREDNISOLONE ACETATE
     Indication: ARTHRITIS
     Dosage: 40MG/ML VIAL (DOSE: 2 ML), UNK
     Route: 014
     Dates: start: 20150528
  9. DEPO-MEDROL [Suspect]
     Active Substance: METHYLPREDNISOLONE ACETATE
     Dosage: UNK
  10. LIDOCAINE. [Suspect]
     Active Substance: LIDOCAINE
     Indication: ARTHRITIS
     Dosage: 2 ML (1% 50ML VIAL), UNK
     Dates: start: 20150528
  11. ALCOHOL PREP PAD [Suspect]
     Active Substance: ISOPROPYL ALCOHOL
     Indication: ARTHRITIS
     Dosage: ONE WIPE, UNK
     Dates: start: 20150528

REACTIONS (6)
  - Staphylococcal infection [Unknown]
  - Arthritis bacterial [Unknown]
  - Sepsis [Unknown]
  - Tachycardia [Unknown]
  - Product quality issue [Unknown]
  - Intentional product misuse [Unknown]

NARRATIVE: CASE EVENT DATE: 2015
